FAERS Safety Report 7998177 (Version 3)
Quarter: 2012Q4

REPORT INFORMATION
  Report Type: Report from Study
  Country: JP (occurrence: JP)
  Receive Date: 20110620
  Receipt Date: 20121212
  Transmission Date: 20130627
  Serious: Yes (Other)
  Sender: FDA-Public Use
  Company Number: JP-ROCHE-783106

PATIENT
  Age: 77 Year
  Sex: Female

DRUGS (18)
  1. TOCILIZUMAB [Suspect]
     Indication: RHEUMATOID ARTHRITIS
     Route: 041
     Dates: start: 20090212, end: 20090413
  2. TOCILIZUMAB [Suspect]
     Route: 041
     Dates: start: 20090518, end: 20090518
  3. TOCILIZUMAB [Suspect]
     Route: 041
     Dates: start: 20090615, end: 20090615
  4. TOCILIZUMAB [Suspect]
     Route: 041
     Dates: start: 20090713, end: 20090713
  5. TOCILIZUMAB [Suspect]
     Route: 041
     Dates: start: 20090811, end: 20091201
  6. TOCILIZUMAB [Suspect]
     Route: 041
     Dates: start: 20100106, end: 20100106
  7. TOCILIZUMAB [Suspect]
     Route: 041
     Dates: start: 20100203, end: 20101207
  8. TOCILIZUMAB [Suspect]
     Route: 041
     Dates: start: 20110308, end: 20110308
  9. TOCILIZUMAB [Suspect]
     Route: 041
     Dates: start: 20110412, end: 20110510
  10. TOCILIZUMAB [Suspect]
     Route: 041
     Dates: start: 20110613, end: 20110831
  11. TOCILIZUMAB [Suspect]
     Route: 041
     Dates: start: 20110930, end: 20111125
  12. TOCILIZUMAB [Suspect]
     Route: 041
  13. RHEUMATREX [Suspect]
     Indication: RHEUMATOID ARTHRITIS
     Route: 048
     Dates: start: 20081213, end: 20101221
  14. FOLIAMIN [Concomitant]
     Indication: BACK PAIN
     Dosage: DOSE FORM: PERORAL AGENT
     Route: 048
  15. PREDNISOLONE [Concomitant]
     Indication: BACK PAIN
     Dosage: DOSE FORM: PERORAL AGENT
     Route: 048
  16. PREDNISOLONE [Concomitant]
     Route: 048
  17. ETODOLAC [Concomitant]
     Dosage: DRUG: RAIPECK ETODOLAC
     Route: 048
  18. ISCOTIN [Concomitant]
     Dosage: DOSE FORM: PERORAL AGENT
     Route: 048

REACTIONS (1)
  - Cell marker increased [Recovered/Resolved]
